FAERS Safety Report 7379257-3 (Version None)
Quarter: 2011Q1

REPORT INFORMATION
  Report Type: 
  Country: None (occurrence: None)
  Receive Date: 20110328
  Receipt Date: 20101102
  Transmission Date: 20110831
  Serious: Yes (Hospitalization)
  Sender: FDA-Public Use
  Company Number: US-AMGEN-USASP2010002899

PATIENT
  Age: 66 Year
  Sex: Male

DRUGS (2)
  1. METHOTREXATE (TREXALL) [Concomitant]
  2. ENBREL [Suspect]
     Indication: RHEUMATOID ARTHRITIS
     Dates: start: 20090401, end: 20090501

REACTIONS (4)
  - BLOOD COUNT ABNORMAL [None]
  - ANAEMIA [None]
  - RHEUMATOID ARTHRITIS [None]
  - GALLBLADDER DISORDER [None]
